FAERS Safety Report 8875899 (Version 1)
Quarter: 2012Q4

REPORT INFORMATION
  Report Type: 
  Country: US (occurrence: US)
  Receive Date: 20121023
  Receipt Date: 20121023
  Transmission Date: 20130627
  Serious: Yes (Hospitalization)
  Sender: FDA-Public Use
  Company Number: US-GLAXOSMITHKLINE-A0876663A

PATIENT
  Age: 46 Year
  Sex: Male

DRUGS (2)
  1. AVANDIA [Suspect]
     Indication: DIABETES MELLITUS
     Dosage: 2MG Twice per day
     Route: 048
     Dates: start: 200208, end: 200507
  2. AVANDAMET [Suspect]
     Indication: DIABETES MELLITUS
     Route: 048

REACTIONS (3)
  - Cerebrovascular accident [Not Recovered/Not Resolved]
  - Arrhythmia [Unknown]
  - Dyspnoea [Unknown]
